FAERS Safety Report 12386056 (Version 2)
Quarter: 2016Q2

REPORT INFORMATION
  Report Type: Spontaneous
  Country: FI (occurrence: FI)
  Receive Date: 20160519
  Receipt Date: 20160627
  Transmission Date: 20160815
  Serious: Yes (Hospitalization, Other)
  Sender: FDA-Public Use
  Company Number: FI-PFIZER INC-2016252310

PATIENT
  Age: 46 Year
  Sex: Female
  Weight: 78 kg

DRUGS (1)
  1. SALAZOPYRIN EN [Suspect]
     Active Substance: SULFASALAZINE
     Indication: SPONDYLOARTHROPATHY
     Dosage: 1000 MG, 2X/DAY
     Route: 048
     Dates: start: 20151125, end: 20160201

REACTIONS (10)
  - Neutrophil count decreased [Recovered/Resolved]
  - Agranulocytosis [Recovered/Resolved]
  - Pharyngitis [Recovered/Resolved]
  - Rash [Recovered/Resolved]
  - Skin ulcer [Recovered/Resolved]
  - Diarrhoea [Unknown]
  - Influenza [Unknown]
  - HLA marker study positive [Unknown]
  - Nasal ulcer [Recovered/Resolved]
  - Mouth ulceration [Recovering/Resolving]

NARRATIVE: CASE EVENT DATE: 2016
